FAERS Safety Report 5802616-4 (Version None)
Quarter: 2008Q3

REPORT INFORMATION
  Report Type: 
  Country: None (occurrence: None)
  Receive Date: 20080708
  Receipt Date: 20080630
  Transmission Date: 20090109
  Serious: Yes (Other)
  Sender: FDA-Public Use
  Company Number: CH-WYE-G01490408

PATIENT
  Age: 32 Year
  Sex: Female
  Weight: 73 kg

DRUGS (6)
  1. EFFEXOR [Suspect]
     Indication: DELUSIONAL DISORDER, PERSECUTORY TYPE
     Route: 048
     Dates: start: 20071101, end: 20080502
  2. EFFEXOR [Suspect]
     Dosage: CHALLENGE TEST, DOSE UNKNOWN
     Dates: start: 20080520, end: 20080520
  3. ZOLPIDEM [Concomitant]
     Indication: INSOMNIA
     Route: 048
     Dates: start: 20071101
  4. OMEPRAZOLE [Concomitant]
     Indication: REFLUX OESOPHAGITIS
     Route: 048
     Dates: start: 20061201
  5. ABILIFY [Suspect]
     Indication: DELUSIONAL DISORDER, PERSECUTORY TYPE
     Route: 048
     Dates: start: 20071101, end: 20080502
  6. ABILIFY [Suspect]
     Dosage: CHALLENGE TEST, DOSE UNKNOWN
     Dates: start: 20080517, end: 20080517

REACTIONS (3)
  - ANGIOEDEMA [None]
  - DERMATITIS PAPILLARIS CAPILLITII [None]
  - URTICARIA [None]
